FAERS Safety Report 24731954 (Version 1)
Quarter: 2024Q4

REPORT INFORMATION
  Report Type: Report from Study
  Country: IT (occurrence: IT)
  Receive Date: 20241213
  Receipt Date: 20241213
  Transmission Date: 20250114
  Serious: Yes (Hospitalization, Other)
  Sender: BAXTER
  Company Number: None

PATIENT
  Age: 10 Year
  Sex: Female

DRUGS (2)
  1. IFOSFAMIDE [Suspect]
     Active Substance: IFOSFAMIDE
     Indication: Osteosarcoma metastatic
     Dosage: 1125 MG
     Route: 041
     Dates: start: 20240221, end: 20240225
  2. MESNA [Suspect]
     Active Substance: MESNA
     Indication: Osteosarcoma metastatic
     Dosage: 1125 MG (DOSAGE FORM: SOLUTION FOR INFUSION)
     Route: 042
     Dates: start: 20240221, end: 20240225

REACTIONS (3)
  - Encephalopathy [Recovered/Resolved]
  - Renal failure [Recovered/Resolved]
  - Off label use [Recovered/Resolved]

NARRATIVE: CASE EVENT DATE: 20240225
